FAERS Safety Report 20813442 (Version 5)
Quarter: 2022Q2

REPORT INFORMATION
  Report Type: Report from Study
  Country: US (occurrence: None)
  Receive Date: 20220511
  Receipt Date: 20220615
  Transmission Date: 20220721
  Serious: Yes (Life-Threatening, Hospitalization)
  Sender: FDA-Public Use
  Company Number: US-ROCHE-3038802

PATIENT
  Age: 47 Year
  Sex: Female
  Weight: 76.3 kg

DRUGS (35)
  1. OCRELIZUMAB [Suspect]
     Active Substance: OCRELIZUMAB
     Indication: Relapsing-remitting multiple sclerosis
     Dosage: WEEK 1?SUBSEQUENT DOSES RECEIVED ON 05/FEB/2013 (WEEK 2), 09/JUL/2013 (WEEK 24), 18/DEC/2013 (WEEK 4
     Route: 042
     Dates: start: 20130122, end: 20130122
  2. OCRELIZUMAB [Suspect]
     Active Substance: OCRELIZUMAB
     Indication: Relapsing-remitting multiple sclerosis
     Dosage: WEEK 0?ON DAYS 1 AND 15 FOR THE FIRST DOSE AND AS A SINGLE INFUSION FOR ALL SUBSEQUENT INFUSIONS EVE
     Route: 042
     Dates: start: 20141208, end: 20141208
  3. OCRELIZUMAB [Suspect]
     Active Substance: OCRELIZUMAB
     Dosage: WEEK 2
     Route: 042
     Dates: start: 20141222, end: 20141222
  4. OCRELIZUMAB [Suspect]
     Active Substance: OCRELIZUMAB
     Dosage: OLE WEEK 24?SUBSEQUENT DOSES 10/NOV/15 (OLE WEEK 48), 22/APR/2016 (OLE  WEEK 72), 11/OCT/2016 (OLE W
     Route: 042
     Dates: start: 20150526, end: 20150526
  5. OCRELIZUMAB [Suspect]
     Active Substance: OCRELIZUMAB
     Indication: Relapsing-remitting multiple sclerosis
     Route: 042
     Dates: start: 20141222, end: 20141222
  6. ACETAMINOPHEN [Concomitant]
     Active Substance: ACETAMINOPHEN
     Indication: COVID-19
     Dosage: BASELINE (WEEK 1)?SUBSEQUENT DOSES: 05/FEB/2013, 09/JUL/2013, 10/JUN/2014, 08/DEC/2014, 22/DEC/2014,
     Dates: start: 20130122
  7. ACETAMINOPHEN [Concomitant]
     Active Substance: ACETAMINOPHEN
     Dates: start: 20220220, end: 20220220
  8. DIPHENHYDRAMINE [Concomitant]
     Active Substance: DIPHENHYDRAMINE
     Dosage: BASELINE (WEEK 1)?SUBSEQUENT DOSES: 05/FEB/2013, 09/JUL/2013, 10/JUN/2014, 08/DEC/2014, 22/DEC/2014,
     Dates: start: 20130122
  9. METHYLPREDNISOLONE [Concomitant]
     Active Substance: METHYLPREDNISOLONE
     Dosage: BASELINE (WEEK 1)?SUBSEQUENT DOSES: 05/FEB/2013, 09/JUL/2013, 10/JUN/2014, 08/DEC/2014, 22/DEC/2014,
     Dates: start: 20130122
  10. BENADRYL [Concomitant]
     Active Substance: DIPHENHYDRAMINE HYDROCHLORIDE
     Dates: start: 20170322
  11. CEFDINIR [Concomitant]
     Active Substance: CEFDINIR
  12. CLINDAMYCIN [Concomitant]
     Active Substance: CLINDAMYCIN
  13. AMOXICILLIN [Concomitant]
     Active Substance: AMOXICILLIN
  14. LORAZEPAM [Concomitant]
     Active Substance: LORAZEPAM
  15. ZOLPIDEM [Concomitant]
     Active Substance: ZOLPIDEM TARTRATE
  16. TRAZODONE [Concomitant]
     Active Substance: TRAZODONE HYDROCHLORIDE
     Indication: Anxiety
  17. ADVAIR DISKUS [Concomitant]
     Active Substance: FLUTICASONE PROPIONATE\SALMETEROL XINAFOATE
     Indication: Asthma
  18. ALBUTEROL [Concomitant]
     Active Substance: ALBUTEROL
     Indication: Asthma
  19. PERCOCET [Concomitant]
     Active Substance: ACETAMINOPHEN\OXYCODONE HYDROCHLORIDE
  20. ZANAFLEX [Concomitant]
     Active Substance: TIZANIDINE HYDROCHLORIDE
  21. SPRINTEC [Concomitant]
     Active Substance: ETHINYL ESTRADIOL\NORGESTIMATE
  22. MUCINEX [Concomitant]
     Active Substance: GUAIFENESIN
     Indication: Cough
  23. MODERNA COVID-19 VACCINE [Concomitant]
     Active Substance: ELASOMERAN
     Indication: COVID-19 prophylaxis
     Dates: start: 20210316
  24. AMITRIPTYLINE [Concomitant]
     Active Substance: AMITRIPTYLINE
     Indication: Depression
  25. PRISTIQ EXTENDED-RELEASE [Concomitant]
     Active Substance: DESVENLAFAXINE SUCCINATE
     Indication: Depression
  26. FLUTICASONE PROPIONATE [Concomitant]
     Active Substance: FLUTICASONE PROPIONATE
     Indication: Hypersensitivity
  27. LASIX [Concomitant]
     Active Substance: FUROSEMIDE
     Indication: Hypertension
     Dates: start: 20201215
  28. FUROSEMIDE [Concomitant]
     Active Substance: FUROSEMIDE
  29. SOLU-MEDROL [Concomitant]
     Active Substance: METHYLPREDNISOLONE SODIUM SUCCINATE
     Dates: start: 20210523
  30. MEDROL [Concomitant]
     Active Substance: METHYLPREDNISOLONE
  31. LYRICA [Concomitant]
     Active Substance: PREGABALIN
     Indication: Multiple sclerosis
     Dates: start: 201203
  32. VANCOMYCIN HYDROCHLORIDE [Concomitant]
     Active Substance: VANCOMYCIN HYDROCHLORIDE
     Dates: start: 20220220
  33. AMPICILLIN [Concomitant]
     Active Substance: AMPICILLIN
     Dates: start: 20220221, end: 20220227
  34. HYDROCORTISONE SODIUM SUCCINATE [Concomitant]
     Active Substance: HYDROCORTISONE SODIUM SUCCINATE
     Indication: Inflammation
     Dates: start: 20220220, end: 20220220
  35. CEFTRIAXONE SODIUM [Concomitant]
     Active Substance: CEFTRIAXONE SODIUM
     Indication: Infection
     Dates: start: 20220331, end: 20220404

REACTIONS (3)
  - Mental status changes [Recovered/Resolved]
  - Acute kidney injury [Recovered/Resolved]
  - Sepsis [Recovered/Resolved]

NARRATIVE: CASE EVENT DATE: 20220220
